FAERS Safety Report 9625740 (Version 1)
Quarter: 2013Q4

REPORT INFORMATION
  Report Type: Spontaneous
  Country: US (occurrence: US)
  Receive Date: 20131016
  Receipt Date: 20131016
  Transmission Date: 20140711
  Serious: No
  Sender: FDA-Public Use
  Company Number: US-009507513-1310USA007043

PATIENT
  Sex: Female
  Weight: 55.33 kg

DRUGS (1)
  1. PROVENTIL [Suspect]
     Dosage: UNK

REACTIONS (1)
  - Arrhythmia [Unknown]
